FAERS Safety Report 10215167 (Version 1)
Quarter: 2014Q2

REPORT INFORMATION
  Report Type: Spontaneous
  Country: GR (occurrence: GR)
  Receive Date: 20140603
  Receipt Date: 20140603
  Transmission Date: 20141212
  Serious: Yes (Other)
  Sender: FDA-Public Use
  Company Number: PHHY2014GR064455

PATIENT
  Age: 42 Year
  Sex: Male

DRUGS (1)
  1. ROTACOR [Suspect]
     Dosage: 10 MG, QD (1 TABLET DAILY EVERY EVENING)
     Route: 048
     Dates: start: 20140520, end: 20140521

REACTIONS (3)
  - Monoplegia [Recovered/Resolved]
  - Dysarthria [Recovered/Resolved]
  - Asthenia [Recovered/Resolved]
